FAERS Safety Report 6176967-0 (Version None)
Quarter: 2009Q2

REPORT INFORMATION
  Report Type: 
  Country: None (occurrence: None)
  Receive Date: 20090501
  Receipt Date: 20090422
  Transmission Date: 20091009
  Serious: Yes (Other)
  Sender: FDA-Public Use
  Company Number: US-WYE-H09076009

PATIENT
  Sex: Female
  Weight: 67.19 kg

DRUGS (2)
  1. PREMARIN [Suspect]
     Indication: OESTROGEN REPLACEMENT THERAPY
     Route: 048
     Dates: start: 19840101, end: 20030101
  2. THYROID TAB [Concomitant]
     Indication: HYPOTHYROIDISM
     Route: 065

REACTIONS (4)
  - BREAST CANCER RECURRENT [None]
  - DECREASED IMMUNE RESPONSIVENESS [None]
  - HYPERTENSION [None]
  - NEOPLASM MALIGNANT [None]
